FAERS Safety Report 4717028-4 (Version None)
Quarter: 2005Q3

REPORT INFORMATION
  Report Type: 
  Country: None (occurrence: None)
  Receive Date: 20050719
  Receipt Date: 20050707
  Transmission Date: 20060218
  Serious: Yes (Hospitalization)
  Sender: FDA-Public Use
  Company Number: JP-BRISTOL-MYERS SQUIBB COMPANY-13029913

PATIENT
  Age: 65 Year
  Sex: Female

DRUGS (5)
  1. TAXOL [Suspect]
     Indication: OVARIAN CANCER
     Route: 041
     Dates: start: 20040922, end: 20050105
  2. PARAPLATIN [Suspect]
     Indication: OVARIAN CANCER
     Dosage: DOSE = 200-450 MG X1/1DAY
     Route: 041
     Dates: start: 20040624, end: 20050105
  3. LASTET [Suspect]
     Indication: OVARIAN CANCER
     Route: 048
     Dates: start: 20030807, end: 20050308
  4. GEMCITABINE HCL [Suspect]
     Indication: OVARIAN CANCER
     Dosage: DOSE = 1000-1200 MG X1/DAY
     Route: 042
     Dates: start: 20040608, end: 20040901
  5. TAXOTERE [Suspect]
     Indication: OVARIAN CANCER
     Route: 041
     Dates: start: 20050323, end: 20050323

REACTIONS (2)
  - ACUTE LEUKAEMIA [None]
  - TREATMENT RELATED SECONDARY MALIGNANCY [None]
